FAERS Safety Report 14854358 (Version 1)
Quarter: 2018Q2

REPORT INFORMATION
  Report Type: Spontaneous
  Country: CO (occurrence: CO)
  Receive Date: 20180420
  Receipt Date: 20180420
  Transmission Date: 20180711
  Serious: Yes (Hospitalization)
  Sender: FDA-Public Use
  Company Number: None

PATIENT
  Age: 32 Year
  Sex: Female
  Weight: 67 kg

DRUGS (4)
  1. ESOMEPRAZOL [Concomitant]
     Active Substance: ESOMEPRAZOLE
  2. PREDNISOLONE. [Concomitant]
     Active Substance: PREDNISOLONE
  3. CICLOSPORIN [Concomitant]
     Active Substance: CYCLOSPORINE
  4. BENLYSTA [Suspect]
     Active Substance: BELIMUMAB
     Indication: SYSTEMIC LUPUS ERYTHEMATOSUS
     Dosage: ?          QUANTITY:520 INJECTION(S);OTHER FREQUENCY:MONTHLY;?
     Route: 042

REACTIONS (1)
  - Pneumonia [None]

NARRATIVE: CASE EVENT DATE: 20170701
